FAERS Safety Report 23659911 (Version 1)
Quarter: 2024Q1

REPORT INFORMATION
  Report Type: Spontaneous
  Country: US (occurrence: US)
  Receive Date: 20240321
  Receipt Date: 20240321
  Transmission Date: 20240410
  Serious: No
  Sender: FDA-Public Use
  Company Number: US-SA-SAC20240318001318

PATIENT
  Age: 28 Year
  Sex: Male

DRUGS (1)
  1. DUPIXENT [Suspect]
     Active Substance: DUPILUMAB
     Indication: Eosinophilic oesophagitis
     Dosage: 300 MG, QW
     Route: 058
     Dates: end: 202402

REACTIONS (6)
  - Throat clearing [Unknown]
  - Fatigue [Recovering/Resolving]
  - Hypertension [Unknown]
  - Eructation [Unknown]
  - Productive cough [Unknown]
  - Arthralgia [Not Recovered/Not Resolved]
